FAERS Safety Report 7477070 (Version 1)
Quarter: 2020Q3

REPORT INFORMATION
  Report Type: Report from Study
  Country: US (occurrence: US)
  Receive Date: 20100715
  Receipt Date: 20100715
  Transmission Date: 20201104
  Serious: Yes (Other)
  Sender: FDA-Public Use
  Company Number: US-JNJFOC-20090305441

PATIENT
  Age: 27 Year
  Sex: Female
  Weight: 63.5 kg

DRUGS (17)
  1. PLACEBO [Suspect]
     Active Substance: UNSPECIFIED INGREDIENT
     Indication: MATERNAL EXPOSURE DURING PREGNANCY
     Route: 050
  2. PLACEBO [Suspect]
     Active Substance: UNSPECIFIED INGREDIENT
     Indication: MATERNAL EXPOSURE DURING PREGNANCY
     Route: 050
  3. PLACEBO [Suspect]
     Active Substance: UNSPECIFIED INGREDIENT
     Indication: MATERNAL EXPOSURE DURING PREGNANCY
     Route: 050
  4. INH [Concomitant]
     Active Substance: ISONIAZID
     Indication: MATERNAL EXPOSURE DURING PREGNANCY
     Route: 050
  5. GOLIMUMAB [Suspect]
     Active Substance: GOLIMUMAB
     Indication: MATERNAL EXPOSURE DURING PREGNANCY
     Route: 050
  6. GOLIMUMAB [Suspect]
     Active Substance: GOLIMUMAB
     Indication: MATERNAL EXPOSURE DURING PREGNANCY
     Route: 050
  7. GOLIMUMAB [Suspect]
     Active Substance: GOLIMUMAB
     Indication: MATERNAL EXPOSURE DURING PREGNANCY
     Route: 050
  8. PLACEBO [Suspect]
     Active Substance: UNSPECIFIED INGREDIENT
     Indication: MATERNAL EXPOSURE DURING PREGNANCY
     Route: 050
  9. PRENATAL VITAMIN [Concomitant]
     Active Substance: VITAMINS
     Indication: VITAMIN SUPPLEMENTATION
     Route: 048
  10. PLACEBO [Suspect]
     Active Substance: UNSPECIFIED INGREDIENT
     Indication: MATERNAL EXPOSURE DURING PREGNANCY
     Route: 050
  11. GOLIMUMAB [Suspect]
     Active Substance: GOLIMUMAB
     Indication: MATERNAL EXPOSURE DURING PREGNANCY
     Route: 050
  12. GOLIMUMAB [Suspect]
     Active Substance: GOLIMUMAB
     Indication: MATERNAL EXPOSURE DURING PREGNANCY
     Route: 050
  13. PLACEBO [Suspect]
     Active Substance: UNSPECIFIED INGREDIENT
     Indication: MATERNAL EXPOSURE DURING PREGNANCY
     Route: 050
  14. MERCAPTOPURINE. [Concomitant]
     Active Substance: MERCAPTOPURINE
     Indication: MATERNAL EXPOSURE DURING PREGNANCY
     Route: 050
  15. GOLIMUMAB [Suspect]
     Active Substance: GOLIMUMAB
     Indication: MATERNAL EXPOSURE DURING PREGNANCY
     Route: 050
  16. PLACEBO [Suspect]
     Active Substance: UNSPECIFIED INGREDIENT
     Indication: MATERNAL EXPOSURE DURING PREGNANCY
     Route: 050
  17. GOLIMUMAB [Suspect]
     Active Substance: GOLIMUMAB
     Indication: MATERNAL EXPOSURE DURING PREGNANCY
     Route: 050

REACTIONS (2)
  - Maternal exposure during pregnancy [Recovered/Resolved]
  - Foetal death [Recovered/Resolved]

NARRATIVE: CASE EVENT DATE: 20090319
